FAERS Safety Report 15288669 (Version 1)
Quarter: 2018Q3

REPORT INFORMATION
  Report Type: Spontaneous
  Country: US (occurrence: US)
  Receive Date: 20180802
  Receipt Date: 20180802
  Transmission Date: 20181010
  Serious: Yes (Other)
  Sender: FDA-Public Use
  Company Number: None

PATIENT
  Age: 79 Year
  Sex: Female
  Weight: 69.4 kg

DRUGS (7)
  1. VITAMIN D [Concomitant]
     Active Substance: CHOLECALCIFEROL
  2. CALCITONIN [Suspect]
     Active Substance: CALCITONIN
     Indication: OSTEOPENIA
     Dates: start: 2016, end: 2017
  3. CENTRUM VITAMINS [Concomitant]
  4. CALCIUM [Concomitant]
     Active Substance: CALCIUM
  5. FLEXSEED CAPSUELS [Concomitant]
  6. LEVOTHYROXIN [Concomitant]
     Active Substance: LEVOTHYROXINE
  7. RESTASIS [Concomitant]
     Active Substance: CYCLOSPORINE

REACTIONS (2)
  - Gingival pain [None]
  - Tooth disorder [None]

NARRATIVE: CASE EVENT DATE: 20170801
